FAERS Safety Report 7577128-0 (Version None)
Quarter: 2011Q2

REPORT INFORMATION
  Report Type: 
  Country: None (occurrence: None)
  Receive Date: 20110624
  Receipt Date: 20110624
  Transmission Date: 20111010
  Serious: Yes (Hospitalization)
  Sender: FDA-Public Use
  Company Number: None

PATIENT
  Age: 57 Year
  Sex: Male

DRUGS (2)
  1. CITALOPRAM HYDROBROMIDE [Suspect]
     Indication: DEPRESSION
     Dosage: PO LONG TERM
  2. TRAMADOL HCL [Suspect]
     Indication: POST-TRAUMATIC PAIN
     Dosage: PO

REACTIONS (10)
  - MENTAL STATUS CHANGES [None]
  - SEROTONIN SYNDROME [None]
  - TREMOR [None]
  - CONFUSIONAL STATE [None]
  - CLONUS [None]
  - FALL [None]
  - POST-TRAUMATIC PAIN [None]
  - PYREXIA [None]
  - HYPERREFLEXIA [None]
  - HUMERUS FRACTURE [None]
